FAERS Safety Report 25571437 (Version 1)
Quarter: 2025Q3

REPORT INFORMATION
  Report Type: Spontaneous
  Country: GB (occurrence: GB)
  Receive Date: 20250717
  Receipt Date: 20250717
  Transmission Date: 20251021
  Serious: Yes (Disabling, Other)
  Sender: BAYER HEALTHCARE PHARMACEUTICALS INC.
  Company Number: None

PATIENT
  Age: 42 Year

DRUGS (1)
  1. CIPROFLOXACIN [Suspect]
     Active Substance: CIPROFLOXACIN
     Dates: start: 20220615, end: 20220616

REACTIONS (26)
  - Chronic fatigue syndrome [Not Recovered/Not Resolved]
  - Postural orthostatic tachycardia syndrome [Not Recovered/Not Resolved]
  - Hyporeflexia [Recovered/Resolved]
  - Costochondritis [Recovered/Resolved]
  - Asthenia [Recovered/Resolved with Sequelae]
  - Pain in extremity [Recovering/Resolving]
  - Hypoaesthesia oral [Recovered/Resolved]
  - Depersonalisation/derealisation disorder [Recovered/Resolved]
  - Decreased appetite [Recovered/Resolved]
  - Insomnia [Recovered/Resolved]
  - Anxiety [Recovered/Resolved with Sequelae]
  - Panic attack [Recovered/Resolved with Sequelae]
  - Depression [Recovered/Resolved with Sequelae]
  - Paraesthesia [Recovered/Resolved with Sequelae]
  - Muscular weakness [Recovered/Resolved with Sequelae]
  - Muscular weakness [Recovered/Resolved with Sequelae]
  - Tendon pain [Recovering/Resolving]
  - Chest discomfort [Recovered/Resolved with Sequelae]
  - Headache [Recovered/Resolved]
  - Fear of death [Recovered/Resolved with Sequelae]
  - Premature ageing [Not Recovered/Not Resolved]
  - Vitreous detachment [Not Recovered/Not Resolved]
  - Collagen disorder [None]
  - Post-traumatic stress disorder [Not Recovered/Not Resolved]
  - Dysphagia [Recovered/Resolved]
  - Mitochondrial toxicity [None]

NARRATIVE: CASE EVENT DATE: 20220615
